FAERS Safety Report 7280820-9 (Version None)
Quarter: 2011Q1

REPORT INFORMATION
  Report Type: 
  Country: None (occurrence: None)
  Receive Date: 20110125
  Receipt Date: 20110107
  Transmission Date: 20110831
  Serious: Yes (Hospitalization)
  Sender: FDA-Public Use
  Company Number: 2010P1003528

PATIENT
  Sex: Male

DRUGS (6)
  1. PREDNISONE TAB [Concomitant]
  2. METHOTREXATE [Concomitant]
  3. PREV MEDS [Concomitant]
  4. WARFARIN SODIUM [Suspect]
     Indication: THROMBOSIS
     Dosage: 5 MG;QOD;PO ; 10 MG;QOD;PO
     Route: 048
     Dates: start: 20060101
  5. WARFARIN SODIUM [Suspect]
     Indication: THROMBOSIS
     Dosage: 5 MG;QOD;PO ; 10 MG;QOD;PO
     Route: 048
     Dates: start: 20060101
  6. LISINOPRIL [Concomitant]

REACTIONS (9)
  - DISCOMFORT [None]
  - APHAGIA [None]
  - ANAPHYLACTIC REACTION [None]
  - THROMBOSIS [None]
  - DRY MOUTH [None]
  - DYSPHAGIA [None]
  - DYSPNOEA [None]
  - FEAR OF DEATH [None]
  - ASTHENIA [None]
